FAERS Safety Report 7180307 (Version 1)
Quarter: 2020Q3

REPORT INFORMATION
  Report Type: Spontaneous
  Country: CH (occurrence: CH)
  Receive Date: 20091118
  Receipt Date: 20091118
  Transmission Date: 20201105
  Serious: Yes (Hospitalization)
  Sender: FDA-Public Use
  Company Number: GXKR2009CH12381

PATIENT
  Age: 66 Year
  Sex: Female

DRUGS (6)
  1. RABEPRAZOLE [Interacting]
     Active Substance: RABEPRAZOLE
     Indication: GASTROOESOPHAGEAL REFLUX DISEASE
     Route: 065
  2. TIBOLONE [Suspect]
     Active Substance: TIBOLONE
     Indication: POSTMENOPAUSE
     Route: 065
  3. CALCIUM [Concomitant]
     Active Substance: CALCIUM
     Route: 065
  4. ALENDRONIC ACID [Interacting]
     Active Substance: ALENDRONIC ACID
     Indication: OSTEOPOROSIS
     Dosage: UNK
     Route: 065
  5. UNSPECIFIED INGREDIENT [Suspect]
     Active Substance: UNSPECIFIED INGREDIENT
  6. IBANDRONIC ACID. [Interacting]
     Active Substance: IBANDRONIC ACID
     Indication: OSTEOPOROSIS
     Dosage: UNK
     Route: 065

REACTIONS (7)
  - Femur fracture [Unknown]
  - Fall [Unknown]
  - Intramedullary rod insertion [Unknown]
  - Pain in extremity [Unknown]
  - Pain [Unknown]
  - Surgery [Unknown]
  - Drug interaction [Unknown]

NARRATIVE: CASE EVENT DATE: 20030101
